FAERS Safety Report 7531670-7 (Version None)
Quarter: 2011Q2

REPORT INFORMATION
  Report Type: 
  Country: None (occurrence: None)
  Receive Date: 20110608
  Receipt Date: 20110602
  Transmission Date: 20111010
  Serious: Yes (Hospitalization, Congenital Anomaly)
  Sender: FDA-Public Use
  Company Number: TH-GILEAD-2011-0039331

PATIENT
  Sex: Male

DRUGS (5)
  1. TRUVADA [Suspect]
     Indication: HIV INFECTION
     Dates: start: 20110420
  2. ZIDOVUDINE [Concomitant]
     Indication: HIV INFECTION
  3. LOPINAVIR [Concomitant]
     Indication: HIV INFECTION
  4. EFAVIRENZ [Concomitant]
     Indication: HIV INFECTION
  5. LAMIVUDINE [Concomitant]
     Indication: HIV INFECTION

REACTIONS (4)
  - SEPSIS [None]
  - URINARY TRACT INFECTION [None]
  - ABDOMINAL MASS [None]
  - SEPTIC SHOCK [None]
